FAERS Safety Report 7168146-5 (Version None)
Quarter: 2010Q4

REPORT INFORMATION
  Report Type: 
  Country: None (occurrence: None)
  Receive Date: 20101216
  Receipt Date: 20101207
  Transmission Date: 20110411
  Serious: Yes (Disabling)
  Sender: FDA-Public Use
  Company Number: IT-GENENTECH-311008

PATIENT
  Sex: Female

DRUGS (15)
  1. MABTHERA [Suspect]
     Indication: DERMATOMYOSITIS
     Dosage: 1000 MG, UNK
     Route: 042
     Dates: start: 20080904, end: 20080918
  2. DELTACORTENE [Suspect]
     Indication: DERMATOMYOSITIS
     Dosage: UNK
     Route: 048
     Dates: start: 20040501
  3. METHOTREXATE [Suspect]
     Indication: PRODUCT USED FOR UNKNOWN INDICATION
     Dosage: 15 MG, 1/WEEK
     Route: 030
     Dates: start: 20040501
  4. LANSOPRAZOLE [Concomitant]
     Indication: PRODUCT USED FOR UNKNOWN INDICATION
     Dosage: 25 MG, PRN
     Route: 048
  5. FOLINA [Concomitant]
     Indication: PRODUCT USED FOR UNKNOWN INDICATION
     Dosage: 10 MG, TID
     Route: 048
  6. LUVION [Concomitant]
     Indication: PRODUCT USED FOR UNKNOWN INDICATION
  7. NATECAL D3 [Concomitant]
     Indication: PRODUCT USED FOR UNKNOWN INDICATION
     Route: 048
  8. ATARAX [Concomitant]
     Indication: PRODUCT USED FOR UNKNOWN INDICATION
     Dosage: 50 MG, QD
     Route: 048
  9. HALCION [Concomitant]
     Indication: PRODUCT USED FOR UNKNOWN INDICATION
     Dosage: UNK TABLET, QD
     Route: 048
  10. ZEFFIX [Concomitant]
     Indication: PRODUCT USED FOR UNKNOWN INDICATION
     Route: 048
  11. DAKTARIN [Concomitant]
     Indication: PRODUCT USED FOR UNKNOWN INDICATION
     Dosage: UNK DF, QID
     Route: 048
  12. HYALURONATE SODIUM [Concomitant]
     Indication: DRY EYE
     Route: 047
  13. BACTRIM [Concomitant]
     Indication: PRODUCT USED FOR UNKNOWN INDICATION
     Dosage: 960 MG, QOD
     Route: 048
  14. FOSAMAX [Concomitant]
     Indication: PRODUCT USED FOR UNKNOWN INDICATION
     Route: 048
  15. ENDOXAN [Concomitant]
     Indication: PRODUCT USED FOR UNKNOWN INDICATION

REACTIONS (2)
  - BLINDNESS UNILATERAL [None]
  - CHORIORETINITIS [None]
